FAERS Safety Report 5285403-8 (Version None)
Quarter: 2007Q1

REPORT INFORMATION
  Report Type: 
  Country: None (occurrence: None)
  Receive Date: 20070328
  Receipt Date: 20070312
  Transmission Date: 20070707
  Serious: Yes (Death)
  Sender: FDA-Public Use
  Company Number: 15914

PATIENT
  Age: 9 Year
  Sex: Female

DRUGS (1)
  1. METHOTREXATE [Suspect]
     Indication: BRAIN NEOPLASM MALIGNANT

REACTIONS (4)
  - CONVULSION [None]
  - GLIOMA [None]
  - INTRACRANIAL PRESSURE INCREASED [None]
  - NERVOUS SYSTEM DISORDER [None]
